FAERS Safety Report 5772449-6 (Version None)
Quarter: 2008Q2

REPORT INFORMATION
  Report Type: 
  Country: None (occurrence: None)
  Receive Date: 20080613
  Receipt Date: 20080610
  Transmission Date: 20081010
  Serious: Yes (Death, Life-Threatening, Other)
  Sender: FDA-Public Use
  Company Number: US-PURDUE-USA_2008_0033240

PATIENT
  Age: 46 Year
  Sex: Female

DRUGS (9)
  1. MS CONTIN [Suspect]
     Indication: BACK PAIN
     Dosage: 30 MG, Q12H
     Route: 048
  2. PERCOCET [Suspect]
     Indication: BACK PAIN
     Dosage: 1 TABLET, BID
     Route: 048
  3. VALIUM [Suspect]
     Indication: BACK PAIN
     Dosage: UNK UNK, UNK
     Route: 048
  4. PEG-INTRON [Concomitant]
     Indication: HEPATITIS C
     Dosage: 96 MCG, DAILY
     Route: 048
     Dates: start: 20071010
  5. RIBAVIRIN [Concomitant]
     Indication: HEPATITIS C
     Dosage: 1000 MG, DAILY
     Route: 048
     Dates: start: 20071010
  6. CELEXA [Concomitant]
     Indication: DEPRESSION
     Dosage: 40 MG, DAILY
     Route: 048
  7. PREVACID [Concomitant]
     Indication: DRUG USE FOR UNKNOWN INDICATION
     Dosage: UNK UNK, UNK
     Route: 048
  8. TRAZODONE HCL [Concomitant]
     Indication: INSOMNIA
     Route: 048
  9. PROMETHAZINE [Concomitant]
     Indication: NAUSEA
     Dosage: UNK UNK, BID
     Route: 048

REACTIONS (13)
  - ANAEMIA [None]
  - DEATH [None]
  - DEPRESSION [None]
  - FATIGUE [None]
  - GRANULOCYTE COUNT DECREASED [None]
  - HAEMATOCRIT DECREASED [None]
  - HAEMOGLOBIN DECREASED [None]
  - INSOMNIA [None]
  - MALAISE [None]
  - NAUSEA [None]
  - RESPIRATORY DEPRESSION [None]
  - UNRESPONSIVE TO STIMULI [None]
  - WHITE BLOOD CELL COUNT DECREASED [None]
